FAERS Safety Report 4887564-9 (Version None)
Quarter: 2006Q1

REPORT INFORMATION
  Report Type: 
  Country: None (occurrence: None)
  Receive Date: 20060118
  Receipt Date: 20060102
  Transmission Date: 20060701
  Serious: Yes (Hospitalization)
  Sender: FDA-Public Use
  Company Number: ES200601001968

PATIENT
  Age: 83 Year
  Sex: Female

DRUGS (3)
  1. FORTEO [Suspect]
     Indication: OSTEOPOROSIS
     Dosage: 20 UG, DAILY (1/D), SUBCUTANEOUS
     Route: 058
     Dates: start: 20051001
  2. FORTEO PEN (FORTEO PEN) [Concomitant]
  3. EFFERALGAN (PARACETAMOL) [Concomitant]

REACTIONS (1)
  - CHOLELITHIASIS [None]
